FAERS Safety Report 20824538 (Version 1)
Quarter: 2022Q2

REPORT INFORMATION
  Report Type: Report from Study
  Country: US (occurrence: None)
  Receive Date: 20220513
  Receipt Date: 20220513
  Transmission Date: 20220720
  Serious: Yes (Hospitalization)
  Sender: FDA-Public Use
  Company Number: US-ROCHE-3093816

PATIENT
  Age: 69 Year
  Sex: Female

DRUGS (3)
  1. BEVACIZUMAB [Suspect]
     Active Substance: BEVACIZUMAB
     Indication: Ovarian epithelial cancer
     Dosage: OVER 30 TO 90 MINUTES ON DAY 1OF CYCLES 2?ON 10/NOV/2011 MOST RECENT DOSE OF  BEVACIZUMAB WAS ADMINI
     Route: 042
     Dates: start: 20101210
  2. PACLITAXEL [Suspect]
     Active Substance: PACLITAXEL
     Indication: Ovarian epithelial cancer
     Dosage: OVER1HR ON DAYS1,8 + 15(CY CLES1 TO 6)?ON 10/NOV/2011 MOST RECENT DOSE OF  PACLITAXEL WAS ADMINISTRA
     Route: 042
     Dates: start: 20101210
  3. CARBOPLATIN [Suspect]
     Active Substance: CARBOPLATIN
     Indication: Ovarian epithelial cancer
     Dosage: ON 10/NOV/2011 MOST RECENT DOSE OF  CARBOPLATIN WAS ADMINISTRATED.?ON DAY 1(CY CLES1-6).
     Route: 042
     Dates: start: 20101210

REACTIONS (2)
  - Abdominal pain [Recovered/Resolved]
  - Small intestinal obstruction [Recovered/Resolved]

NARRATIVE: CASE EVENT DATE: 20111027
